FAERS Safety Report 15602782 (Version 2)
Quarter: 2018Q4

REPORT INFORMATION
  Report Type: Report from Study
  Country: ES (occurrence: ES)
  Receive Date: 20181109
  Receipt Date: 20181114
  Transmission Date: 20190205
  Serious: Yes (Other)
  Sender: FDA-Public Use
  Company Number: ES-PFIZER INC-2018457712

PATIENT
  Age: 64 Year
  Sex: Female

DRUGS (18)
  1. THALIDOMIDE [Suspect]
     Active Substance: THALIDOMIDE
     Dosage: 50 MG, 1X/DAY
     Route: 065
     Dates: start: 20160829
  2. THALIDOMIDE [Suspect]
     Active Substance: THALIDOMIDE
     Dosage: 100 MG, 1X/DAY
     Route: 065
     Dates: start: 20160615
  3. TIRODRIL [Concomitant]
     Active Substance: METHIMAZOLE
     Dosage: 5 MG, UNK
     Route: 065
  4. THALIDOMIDE [Suspect]
     Active Substance: THALIDOMIDE
     Indication: PLASMA CELL MYELOMA
     Dosage: 100 MG, UNK
     Route: 065
     Dates: end: 20160908
  5. OMEPRAZOLE. [Concomitant]
     Active Substance: OMEPRAZOLE
     Dosage: 20 MG, 1X/DAY
     Route: 065
  6. NOLOTIL [METAMIZOLE MAGNESIUM] [Concomitant]
     Dosage: 575 MG, UNK
     Route: 065
  7. DOXORUBICIN HCL [Suspect]
     Active Substance: DOXORUBICIN HYDROCHLORIDE
     Indication: PLASMA CELL MYELOMA
     Dosage: UNK
     Route: 065
     Dates: start: 20160615, end: 20160908
  8. VALSARTAN/HYDROCHLOROTHIAZIDE [Concomitant]
     Active Substance: HYDROCHLOROTHIAZIDE\VALSARTAN
     Dosage: DOSAGE FORM: UNSPECIFIED, 80/25 MG
     Route: 065
  9. DEXAMETHASONE. [Suspect]
     Active Substance: DEXAMETHASONE
     Indication: PLASMA CELL MYELOMA
     Dosage: UNK
     Route: 065
     Dates: start: 20160615, end: 20160908
  10. CYCLOPHOSPHAMIDE. [Suspect]
     Active Substance: CYCLOPHOSPHAMIDE
     Indication: PLASMA CELL MYELOMA
     Dosage: UNK
     Route: 065
     Dates: start: 20160615, end: 20160908
  11. ETOPOSIDE. [Suspect]
     Active Substance: ETOPOSIDE
     Indication: PLASMA CELL MYELOMA
     Dosage: UNK
     Route: 065
     Dates: start: 20160615, end: 20160908
  12. ACYCLOVIR [ACICLOVIR] [Concomitant]
     Active Substance: ACYCLOVIR
     Dosage: 400 MG, 2X/DAY
     Route: 065
  13. IBUPROFEN. [Concomitant]
     Active Substance: IBUPROFEN
     Dosage: 600 MG, UNK
     Route: 065
  14. PARACETAMOL [Concomitant]
     Active Substance: ACETAMINOPHEN
     Dosage: 1 G, UNK
     Route: 065
  15. CISPLATIN. [Suspect]
     Active Substance: CISPLATIN
     Indication: PLASMA CELL MYELOMA
     Dosage: UNK
     Route: 065
     Dates: start: 20160615, end: 20160908
  16. FORMALDEHYDE. [Concomitant]
     Active Substance: FORMALDEHYDE
     Dosage: UNK
     Route: 055
  17. NEORECORMON [Concomitant]
     Active Substance: ERYTHROPOIETIN
     Dosage: 3000 IU, WEEKLY
     Route: 065
  18. CLEXANE [Concomitant]
     Active Substance: ENOXAPARIN SODIUM
     Dosage: 80 MG, 1X/DAY
     Route: 065

REACTIONS (2)
  - Neuropathy peripheral [Unknown]
  - Pancytopenia [Unknown]

NARRATIVE: CASE EVENT DATE: 2016
